FAERS Safety Report 5585352-1 (Version None)
Quarter: 2008Q1

REPORT INFORMATION
  Report Type: 
  Country: None (occurrence: None)
  Receive Date: 20080109
  Receipt Date: 20071230
  Transmission Date: 20080703
  Serious: Yes (Other)
  Sender: FDA-Public Use
  Company Number: US-ROCHE-539050

PATIENT
  Age: 46 Year
  Sex: Male

DRUGS (2)
  1. PEG-INTERFERON A-2A (RO 25-8310) [Suspect]
     Dosage: FORM- PRE-FILLED SYRINGE
     Route: 065
     Dates: start: 20071125
  2. RIBAVIRIN [Suspect]
     Dosage: PATIENT SKIPPED THERAPY ON 22 DECEMBER 2007 AND 23 DECEMBER 2007 AS HE FELT UNWELL.
     Route: 065
     Dates: start: 20071125

REACTIONS (1)
  - LOSS OF CONSCIOUSNESS [None]
